FAERS Safety Report 18106929 (Version 1)
Quarter: 2020Q3

REPORT INFORMATION
  Report Type: Spontaneous
  Country: US (occurrence: US)
  Receive Date: 20200803
  Receipt Date: 20200803
  Transmission Date: 20201103
  Serious: Yes (Hospitalization)
  Sender: FDA-Public Use
  Company Number: None

PATIENT

DRUGS (1)
  1. HALOPERIDOL. [Suspect]
     Active Substance: HALOPERIDOL

REACTIONS (3)
  - Electrocardiogram QT prolonged [None]
  - Unresponsive to stimuli [None]
  - Blood glucose decreased [None]

NARRATIVE: CASE EVENT DATE: 20200524
